FAERS Safety Report 6935879-2 (Version None)
Quarter: 2010Q3

REPORT INFORMATION
  Report Type: 
  Country: None (occurrence: None)
  Receive Date: 20100819
  Receipt Date: 20100819
  Transmission Date: 20110219
  Serious: Yes (Other)
  Sender: FDA-Public Use
  Company Number: None

PATIENT
  Sex: Female

DRUGS (5)
  1. RECLAST [Suspect]
     Indication: OSTEOPENIA
     Dosage: 5 MG ONCE IV
     Route: 042
     Dates: start: 20100811, end: 20100811
  2. LEXAPRO [Concomitant]
  3. PREVACID [Concomitant]
  4. CALCIUM [Concomitant]
  5. MULTIPLE VITAMIN [Concomitant]

REACTIONS (4)
  - CONFUSIONAL STATE [None]
  - DRUG HYPERSENSITIVITY [None]
  - PAIN [None]
  - REFUSAL OF TREATMENT BY PATIENT [None]
